FAERS Safety Report 5569653-9 (Version None)
Quarter: 2007Q4

REPORT INFORMATION
  Report Type: 
  Country: None (occurrence: None)
  Receive Date: 20071220
  Receipt Date: 20071213
  Transmission Date: 20080405
  Serious: Yes (Death)
  Sender: FDA-Public Use
  Company Number: B0433780A

PATIENT
  Age: 70 Year
  Sex: Female

DRUGS (13)
  1. SERETIDE [Suspect]
     Indication: DRUG USE FOR UNKNOWN INDICATION
     Route: 055
     Dates: start: 20060701, end: 20060801
  2. FENPROCOUMON [Concomitant]
     Dates: start: 20060609
  3. CARVEDILOL [Concomitant]
     Dosage: 25MG PER DAY
     Dates: start: 20060614
  4. FOSINOPRIL SODIUM [Concomitant]
     Dosage: 20MG PER DAY
     Dates: start: 20030811
  5. RIVOTRIL [Concomitant]
     Dosage: 1MG PER DAY
     Dates: start: 19950620
  6. NEWACE [Concomitant]
     Dosage: 10MG PER DAY
     Dates: start: 20021018
  7. ACTONEL [Concomitant]
     Dates: start: 20050426
  8. SPIRONOLACTONE [Concomitant]
     Dosage: 25MG PER DAY
     Dates: start: 20060704
  9. CALCICHEW [Concomitant]
     Dosage: 400IU PER DAY
     Dates: start: 20050426
  10. LANOXIN [Concomitant]
     Dosage: .125MG PER DAY
     Dates: start: 20060704
  11. KONAKION [Concomitant]
     Dosage: 10MG PER DAY
     Dates: start: 20060628, end: 20060629
  12. LESCOL [Concomitant]
     Dosage: 20MG PER DAY
     Dates: start: 19970825
  13. OMEPRAZOLE [Concomitant]
     Dosage: 40MG PER DAY
     Dates: start: 20020916

REACTIONS (3)
  - CONTUSION [None]
  - DISEASE PROGRESSION [None]
  - NEOPLASM MALIGNANT [None]
